FAERS Safety Report 7400230-0 (Version None)
Quarter: 2011Q2

REPORT INFORMATION
  Report Type: 
  Country: None (occurrence: None)
  Receive Date: 20110407
  Receipt Date: 20110329
  Transmission Date: 20111010
  Serious: Yes (Hospitalization)
  Sender: FDA-Public Use
  Company Number: US-ROCHE-768484

PATIENT
  Age: 35 Year
  Sex: Male
  Weight: 94.2 kg

DRUGS (16)
  1. DEXAMETHASONE [Concomitant]
     Dosage: FREQUENCY: QD DAY BEFORE AND 2 DAYS AFTER CHEMOTHERAPY
  2. CLONAZEPAM [Concomitant]
  3. DIFLUCAN [Concomitant]
     Dosage: FREQUENCY:QD
  4. COLCHICINE [Concomitant]
     Dosage: FREQUENCY: QD
  5. LISINOPRIL [Concomitant]
     Dosage: FREQUENCY:QD.
  6. DOCETAXEL [Suspect]
     Dosage: FREQUENCY: DAY 1 Q3W
     Route: 042
     Dates: start: 20110311
  7. FILGRASTIM [Concomitant]
     Dosage: X 7 DAYS, START DAY 9.
  8. PROCHLORPERAZINE TAB [Concomitant]
     Dosage: FREQUENCY: AS NECESSARY
  9. BEVACIZUMAB [Suspect]
     Route: 042
     Dates: start: 20110311
  10. TESTOSTERONE PATCH [Concomitant]
  11. METOPROLOL TARTRATE [Concomitant]
  12. GEMCITABINE [Suspect]
     Dosage: FREQUENCY: DAY 1 + DAY 8 (18 MARCH 2011) Q3W.
     Route: 042
     Dates: start: 20110311
  13. AUGMENTIN [Concomitant]
     Dosage: FREQUENCY: 875/125 MG
  14. CITALOPRAM [Concomitant]
     Dosage: FREQUENCY: QD
  15. FAMOTIDINE [Concomitant]
     Dosage: FREQUENCY: QD
  16. LOMOTIL [Concomitant]
     Dosage: DOSE: 2.5-0.025 MG Q6 FRQUENCY: AS NECESSARY (DIARRHEA)

REACTIONS (2)
  - PNEUMONITIS [None]
  - PNEUMONIA [None]
